FAERS Safety Report 8225251-X (Version None)
Quarter: 2012Q1

REPORT INFORMATION
  Report Type: 
  Country: None (occurrence: None)
  Receive Date: 20120321
  Receipt Date: 20120308
  Transmission Date: 20120608
  Serious: Yes (Death, Other)
  Sender: FDA-Public Use
  Company Number: AU-ACTELION-A-CH2012-62297

PATIENT
  Sex: Male

DRUGS (1)
  1. TRACLEER [Suspect]
     Indication: SYSTEMIC SCLEROSIS
     Dosage: 125 MG, BID
     Route: 048
     Dates: start: 20070815

REACTIONS (2)
  - CREST SYNDROME [None]
  - CONCOMITANT DISEASE AGGRAVATED [None]
